FAERS Safety Report 13184581 (Version 2)
Quarter: 2017Q1

REPORT INFORMATION
  Report Type: Spontaneous
  Country: DE (occurrence: DE)
  Receive Date: 20170203
  Receipt Date: 20170220
  Transmission Date: 20170428
  Serious: Yes (Life-Threatening, Hospitalization, Other)
  Sender: FDA-Public Use
  Company Number: DE-JNJFOC-20170124639

PATIENT
  Sex: Male

DRUGS (2)
  1. L-THYROXIN [Concomitant]
     Active Substance: LEVOTHYROXINE SODIUM
     Indication: HYPOTHYROIDISM
  2. DARZALEX [Suspect]
     Active Substance: DARATUMUMAB
     Indication: PLASMA CELL MYELOMA
     Dosage: DOSE: 16MG/KG
     Route: 042
     Dates: start: 20170112, end: 20170112

REACTIONS (9)
  - Renal failure [Recovering/Resolving]
  - Thrombocytopenia [Recovering/Resolving]
  - Bone marrow infiltration [Recovering/Resolving]
  - General physical health deterioration [Unknown]
  - Leukopenia [Recovering/Resolving]
  - Pancytopenia [Unknown]
  - Respiratory syncytial virus infection [Unknown]
  - Pneumonia [Unknown]
  - Haemoglobin decreased [Recovering/Resolving]
